FAERS Safety Report 10262390 (Version 2)
Quarter: 2014Q2

REPORT INFORMATION
  Report Type: Spontaneous
  Country: CH (occurrence: CH)
  Receive Date: 20140626
  Receipt Date: 20140626
  Transmission Date: 20141212
  Serious: Yes (Death, Hospitalization, Other)
  Sender: FDA-Public Use
  Company Number: CH-ACORDA-ACO_29286_2012

PATIENT
  Age: 48 Year
  Sex: Male

DRUGS (13)
  1. SIRDALUD [Suspect]
     Indication: MUSCLE SPASMS
  2. GILENYA [Suspect]
     Indication: MULTIPLE SCLEROSIS
     Dosage: UNK
     Route: 048
     Dates: start: 20110427
  3. LEPONEX [Suspect]
     Indication: PRODUCT USED FOR UNKNOWN INDICATION
  4. REMERON [Concomitant]
     Indication: PRODUCT USED FOR UNKNOWN INDICATION
  5. SURMONTIL                          /00051801/ [Concomitant]
     Indication: PRODUCT USED FOR UNKNOWN INDICATION
  6. TEMESTA                            /00273201/ [Concomitant]
     Indication: PRODUCT USED FOR UNKNOWN INDICATION
  7. PANTOZOL                           /01263204/ [Concomitant]
     Indication: PRODUCT USED FOR UNKNOWN INDICATION
  8. BUSCOPAN [Concomitant]
     Indication: PRODUCT USED FOR UNKNOWN INDICATION
  9. MOTILIUM                           /00498201/ [Concomitant]
     Indication: PRODUCT USED FOR UNKNOWN INDICATION
  10. MOVICOL                            /01625101/ [Concomitant]
     Indication: PRODUCT USED FOR UNKNOWN INDICATION
  11. MAGNESIOCARD [Concomitant]
     Indication: PRODUCT USED FOR UNKNOWN INDICATION
  12. SORTIS [Concomitant]
     Indication: PRODUCT USED FOR UNKNOWN INDICATION
  13. INDERAL [Concomitant]
     Indication: PRODUCT USED FOR UNKNOWN INDICATION

REACTIONS (6)
  - Completed suicide [Fatal]
  - Depression [Fatal]
  - Fear [Not Recovered/Not Resolved]
  - Feeling of despair [Not Recovered/Not Resolved]
  - Pain [Not Recovered/Not Resolved]
  - Multiple sclerosis relapse [Not Recovered/Not Resolved]
